FAERS Safety Report 23615147 (Version 2)
Quarter: 2024Q3

REPORT INFORMATION
  Report Type: Spontaneous
  Country: US (occurrence: US)
  Receive Date: 20240311
  Receipt Date: 20240830
  Transmission Date: 20241017
  Serious: Yes (Disabling, Other)
  Sender: AMGEN
  Company Number: US-HORIZON THERAPEUTICS-HZN-2024-002756

PATIENT
  Age: 79 Year
  Sex: Female

DRUGS (36)
  1. TEPEZZA [Suspect]
     Active Substance: TEPROTUMUMAB-TRBW
     Indication: Endocrine ophthalmopathy
     Dosage: 550 MILLIGRAM, Q3WK
     Route: 042
     Dates: start: 20201027
  2. TEPEZZA [Suspect]
     Active Substance: TEPROTUMUMAB-TRBW
     Indication: Graves^ disease
     Dosage: 1070 MILLIGRAM, Q3WK
     Route: 042
     Dates: start: 20201117
  3. TEPEZZA [Suspect]
     Active Substance: TEPROTUMUMAB-TRBW
     Dosage: 1050 MILLIGRAM, Q3WK
     Route: 042
     Dates: start: 20201208
  4. TEPEZZA [Suspect]
     Active Substance: TEPROTUMUMAB-TRBW
     Dosage: UNK, Q3WK
     Route: 042
     Dates: start: 20211115
  5. TEPEZZA [Suspect]
     Active Substance: TEPROTUMUMAB-TRBW
     Dosage: UNK, Q3WK
     Route: 042
     Dates: start: 20211202
  6. CALCIUM 600 PLUS VITAMIN D3 [Concomitant]
     Dosage: UNK, QD
  7. CRANBERRY [Concomitant]
     Active Substance: CRANBERRY
     Dosage: 500 MILLIGRAM
  8. POLYSPORIN [Concomitant]
     Active Substance: BACITRACIN ZINC\POLYMYXIN B SULFATE
     Dosage: UNK UNK, TID (FOR 1 WEEK)
     Route: 047
  9. FML S.O.P. [Concomitant]
     Indication: Eye inflammation
     Dosage: UNK UNK, QID
     Route: 047
  10. GLUCOSAMINE [Concomitant]
     Active Substance: GLUCOSAMINE
     Dosage: UNK, QD (1500 COMPLEX)
  11. PRINIVIL [Concomitant]
     Active Substance: LISINOPRIL
     Dosage: 20 MILLIGRAM (1/2 TAB QHS FOR 6 DAYS. THEN, IF BP ELEVATED, INCREASE TO 1 TAB QHS)
     Route: 048
  12. ZESTRIL [Concomitant]
     Active Substance: LISINOPRIL
     Dosage: 209 MILLIGRAM
     Route: 048
  13. LOTEMAX [Concomitant]
     Active Substance: LOTEPREDNOL ETABONATE
     Indication: Eye inflammation
     Dosage: UNK UNK, QID
  14. TAPAZOLE [Concomitant]
     Active Substance: METHIMAZOLE
     Dosage: 5 MILLIGRAM, QD (FOR THREE WEEK)
  15. TAPAZOLE [Concomitant]
     Active Substance: METHIMAZOLE
     Dosage: 5 MILLIGRAM, QWK (5 DAYS A WEEK, SKIP 2 DAYS A WEEK)
  16. LOPRESSOR [Concomitant]
     Active Substance: METOPROLOL TARTRATE
     Dosage: 25 MILLIGRAM (1/2 TAB Q12 HR FOR 6 DAYS)
  17. MYCOSTATIN [Concomitant]
     Active Substance: NYSTATIN
     Dosage: UNK (100,000 UNIT/ML, TAKE 500,000 UNITS)
     Route: 048
  18. DELTASONE [Concomitant]
     Active Substance: PREDNISONE
     Dosage: 1 MILLIGRAM (7 MILLIGRAM ON MONDAY 2/22)
     Route: 048
  19. DELTASONE [Concomitant]
     Active Substance: PREDNISONE
     Dosage: 5 MILLIGRAM, QD (FOR 1 WEEK)
     Route: 048
  20. DELTASONE [Concomitant]
     Active Substance: PREDNISONE
     Dosage: 10 MILLIGRAM, QD (FOR 1 WEEK)
     Route: 048
  21. DELTASONE [Concomitant]
     Active Substance: PREDNISONE
     Dosage: 15 MILLIGRAM, QD (FOR 1 WEEK)
     Route: 048
  22. DELTASONE [Concomitant]
     Active Substance: PREDNISONE
     Dosage: 20 MILLIGRAM, TID
     Route: 048
  23. Probiotic powder for Infant [Concomitant]
  24. SELENIUM [Concomitant]
     Active Substance: SELENIUM
     Dosage: 200 MICROGRAM, QD
     Route: 048
  25. SODIUM CHLORIDE [Concomitant]
     Active Substance: SODIUM CHLORIDE
     Dosage: UNK UNK, BID
     Route: 045
  26. BACTRIM [Concomitant]
     Active Substance: SULFAMETHOXAZOLE\TRIMETHOPRIM
     Dosage: (200-40 MG/5 MILLIGRAM)
     Route: 048
  27. BACTRIM DS [Concomitant]
     Active Substance: SULFAMETHOXAZOLE\TRIMETHOPRIM
     Dosage: UNK UNK, QD
     Route: 048
  28. NEBCIN [Concomitant]
     Active Substance: TOBRAMYCIN SULFATE
     Dosage: UNK, QD (80MG/2ML)
     Route: 045
     Dates: start: 20151204
  29. HERBALS\TURMERIC [Concomitant]
     Active Substance: HERBALS\TURMERIC
  30. RECLAST [Concomitant]
     Active Substance: ZOLEDRONIC ACID
     Indication: Osteoporosis
     Dosage: UNK
     Dates: start: 20200818
  31. TOBI [Concomitant]
     Active Substance: TOBRAMYCIN
     Dosage: QD (300 MG/5 ML, TAKE 4 ML BY INHALATION)
     Route: 045
  32. ADVAIR HFA [Concomitant]
     Active Substance: FLUTICASONE PROPIONATE\SALMETEROL XINAFOATE
     Dosage: Q12H (2 PUFFS)
     Dates: start: 20110407
  33. DIETARY SUPPLEMENT [Concomitant]
     Active Substance: DIETARY SUPPLEMENT
     Dosage: 10 MILLIGRAM, QD
     Route: 048
  34. THERATEARS [Concomitant]
     Active Substance: CARBOXYMETHYLCELLULOSE SODIUM
     Dosage: QD (3 TO 4 TIMES)
     Route: 047
  35. SODIUM CHLORIDE [Concomitant]
     Active Substance: SODIUM CHLORIDE
     Route: 045
  36. LEVOFLOXACIN [Concomitant]
     Active Substance: LEVOFLOXACIN
     Dosage: 500 MILLIGRAM, QD
     Route: 048

REACTIONS (19)
  - Deafness neurosensory [Unknown]
  - Disability [Not Recovered/Not Resolved]
  - Physical disability [Not Recovered/Not Resolved]
  - Injury [Not Recovered/Not Resolved]
  - Pain [Not Recovered/Not Resolved]
  - Emotional distress [Not Recovered/Not Resolved]
  - Impaired quality of life [Not Recovered/Not Resolved]
  - Economic problem [Not Recovered/Not Resolved]
  - Discomfort [Not Recovered/Not Resolved]
  - Concomitant disease aggravated [Not Recovered/Not Resolved]
  - Anxiety [Not Recovered/Not Resolved]
  - Deformity [Not Recovered/Not Resolved]
  - Product quality issue [Unknown]
  - Presbyopia [Unknown]
  - Balance disorder [Unknown]
  - Tinnitus [Not Recovered/Not Resolved]
  - Ear discomfort [Unknown]
  - Autophony [Unknown]
  - Facial spasm [Unknown]

NARRATIVE: CASE EVENT DATE: 20211201
